FAERS Safety Report 14430750 (Version 2)
Quarter: 2018Q1

REPORT INFORMATION
  Report Type: Spontaneous
  Country: TR (occurrence: TR)
  Receive Date: 20180124
  Receipt Date: 20180130
  Transmission Date: 20180509
  Serious: Yes (Other)
  Sender: FDA-Public Use
  Company Number: TR-ALVOGEN-2018-ALVOGEN-094943

PATIENT
  Age: 45 Year
  Sex: Female

DRUGS (3)
  1. CHLORAMPHENICOL [Concomitant]
     Active Substance: CHLORAMPHENICOL
     Indication: LISTERIOSIS
  2. LEVETIRACETAM. [Suspect]
     Active Substance: LEVETIRACETAM
     Indication: EPILEPSY
  3. MEROPENEM. [Concomitant]
     Active Substance: MEROPENEM
     Indication: LISTERIOSIS

REACTIONS (2)
  - Hypogammaglobulinaemia [Recovered/Resolved]
  - Bone marrow failure [Recovered/Resolved]
